FAERS Safety Report 5341285-7 (Version None)
Quarter: 2007Q2

REPORT INFORMATION
  Report Type: 
  Country: None (occurrence: None)
  Receive Date: 20070530
  Receipt Date: 20070521
  Transmission Date: 20071010
  Serious: Yes (Hospitalization)
  Sender: FDA-Public Use
  Company Number: 26660

PATIENT
  Age: 72 Year
  Sex: Male

DRUGS (3)
  1. NIASPAN [Suspect]
  2. NAPROSYN [Suspect]
     Indication: PAIN
     Dosage: 500 MG BID PO
     Route: 048
     Dates: start: 20061015
  3. PLAVIX [Suspect]
     Indication: STENT PLACEMENT

REACTIONS (9)
  - BURNING SENSATION [None]
  - DRUG INTERACTION [None]
  - DYSPNOEA [None]
  - ERYTHEMA [None]
  - EYE INFECTION [None]
  - LOCALISED INFECTION [None]
  - RASH [None]
  - SHOCK [None]
  - STAPHYLOCOCCAL INFECTION [None]
